FAERS Safety Report 26181765 (Version 2)
Quarter: 2025Q4

REPORT INFORMATION
  Report Type: Spontaneous
  Country: US (occurrence: US)
  Receive Date: 20251221
  Receipt Date: 20251225
  Transmission Date: 20260117
  Serious: Yes (Other)
  Sender: MERCK SHARP & DOHME LLC
  Company Number: US-009507513-2361122

PATIENT
  Age: 49 Year
  Sex: Female

DRUGS (11)
  1. KEYTRUDA [Suspect]
     Active Substance: PEMBROLIZUMAB
     Indication: Triple negative breast cancer
     Dosage: IV INFUSION EVERY 3 WEEKS
     Route: 041
     Dates: start: 202407, end: 202503
  2. KEYTRUDA [Suspect]
     Active Substance: PEMBROLIZUMAB
     Indication: Triple negative breast cancer
     Dates: start: 20250522
  3. PROPOFOL [Concomitant]
     Active Substance: PROPOFOL
  4. CARBOPLATIN [Suspect]
     Active Substance: CARBOPLATIN
     Indication: Triple negative breast cancer
  5. PACLITAXEL [Suspect]
     Active Substance: PACLITAXEL
     Indication: Triple negative breast cancer
  6. DOXORUBICIN [Suspect]
     Active Substance: DOXORUBICIN
     Indication: Triple negative breast cancer
  7. CYCLOPHOSPHAMIDE [Suspect]
     Active Substance: CYCLOPHOSPHAMIDE
     Indication: Triple negative breast cancer
  8. PREDNISONE [Suspect]
     Active Substance: PREDNISONE
     Indication: Eosinophilic oesophagitis
     Dosage: TAPER
     Dates: start: 20250618, end: 202507
  9. PREDNISONE [Suspect]
     Active Substance: PREDNISONE
     Indication: Eosinophilic oesophagitis
     Dates: start: 20250825
  10. PREDNISONE [Suspect]
     Active Substance: PREDNISONE
     Indication: Eosinophilic oesophagitis
     Dates: start: 2025
  11. PREDNISONE [Suspect]
     Active Substance: PREDNISONE
     Indication: Eosinophilic oesophagitis
     Dosage: DECREASE 1 MG PER WEEK UNTIL 4 MG THEN DECREASE 0.5 MG WEEKLY THEREAFTER
     Dates: start: 20251128

REACTIONS (36)
  - Oesophagitis haemorrhagic [Recovering/Resolving]
  - Rash [Recovered/Resolved]
  - Hypothyroidism [Not Recovered/Not Resolved]
  - Arthralgia [Not Recovered/Not Resolved]
  - Liver function test increased [Not Recovered/Not Resolved]
  - Alopecia [Not Recovered/Not Resolved]
  - Oesophageal ulcer [Recovered/Resolved]
  - Memory impairment [Not Recovered/Not Resolved]
  - Joint stiffness [Not Recovered/Not Resolved]
  - Laboratory test abnormal [Recovering/Resolving]
  - Neuropathy peripheral [Recovering/Resolving]
  - Constipation [Not Recovered/Not Resolved]
  - Communication disorder [Not Recovered/Not Resolved]
  - Neck mass [Not Recovered/Not Resolved]
  - Gastrooesophageal reflux disease [Not Recovered/Not Resolved]
  - Vasodilatation [Not Recovered/Not Resolved]
  - Socioeconomic precarity [Unknown]
  - Rash [Not Recovered/Not Resolved]
  - Madarosis [Not Recovered/Not Resolved]
  - Eosinophilic oesophagitis [Recovering/Resolving]
  - Monocyte percentage increased [Unknown]
  - Lymphocyte count decreased [Unknown]
  - Monocyte count increased [Unknown]
  - Anion gap decreased [Unknown]
  - Eosinophilia [Unknown]
  - Headache [Unknown]
  - Mammoplasty [Recovered/Resolved]
  - Central venous catheterisation [Unknown]
  - Mean platelet volume decreased [Unknown]
  - Erosive oesophagitis [Recovering/Resolving]
  - Oesophageal stenosis [Unknown]
  - Granuloma [Unknown]
  - Hypertransaminasaemia [Unknown]
  - Amenorrhoea [Not Recovered/Not Resolved]
  - Lymphocyte percentage decreased [Unknown]
  - Breast cyst [Unknown]

NARRATIVE: CASE EVENT DATE: 20240101
